FAERS Safety Report 9717361 (Version 1)
Quarter: 2013Q4

REPORT INFORMATION
  Report Type: Spontaneous
  Country: US (occurrence: US)
  Receive Date: 20131127
  Receipt Date: 20131127
  Transmission Date: 20140711
  Serious: Yes (Hospitalization)
  Sender: FDA-Public Use
  Company Number: US-GILEAD-2008-0019549

PATIENT
  Age: 58 Year
  Sex: Female
  Weight: 54.43 kg

DRUGS (10)
  1. LETAIRIS [Suspect]
     Indication: PULMONARY ARTERIAL HYPERTENSION
     Route: 048
     Dates: start: 20081014
  2. LISINOPRIL [Concomitant]
  3. NORVASC [Concomitant]
  4. PLAQUENIL [Concomitant]
  5. MINOCIN [Concomitant]
  6. BONIVA [Concomitant]
  7. SINGULAIR [Concomitant]
  8. ADVAIR [Concomitant]
  9. ASA [Concomitant]
  10. CORTEF [Concomitant]

REACTIONS (2)
  - Dyspnoea [Not Recovered/Not Resolved]
  - Local swelling [Not Recovered/Not Resolved]
